FAERS Safety Report 4439975-3 (Version None)
Quarter: 2004Q3

REPORT INFORMATION
  Report Type: 
  Country: None (occurrence: None)
  Receive Date: 20040902
  Receipt Date: 20040824
  Transmission Date: 20050211
  Serious: Yes (Hospitalization, Other)
  Sender: FDA-Public Use
  Company Number: DE-BRISTOL-MYERS SQUIBB COMPANY-12684965

PATIENT
  Age: 63 Year
  Sex: Male
  Weight: 83 kg

DRUGS (6)
  1. CARBOPLATIN [Suspect]
     Indication: BRONCHIAL CARCINOMA
     Dosage: CYCLE 1: 14-APR-2004
     Route: 042
     Dates: start: 20040505, end: 20040505
  2. PACLITAXEL [Suspect]
     Indication: BRONCHIAL CARCINOMA
     Dosage: CYCLE 1: 14-APR-2004
     Route: 042
     Dates: start: 20040505, end: 20040505
  3. DEXAMETHASONE [Concomitant]
     Indication: PREMEDICATION
     Route: 042
  4. TAVEGIL [Concomitant]
     Indication: PREMEDICATION
     Route: 042
  5. ZANTAC [Concomitant]
     Indication: PREMEDICATION
     Route: 042
  6. KEVATRIL [Concomitant]
     Indication: PREMEDICATION
     Route: 042

REACTIONS (4)
  - ATRIAL FIBRILLATION [None]
  - ELECTROCARDIOGRAM CHANGE [None]
  - FEBRILE INFECTION [None]
  - LEUKOPENIA [None]
